FAERS Safety Report 8807535 (Version 1)
Quarter: 2012Q4

REPORT INFORMATION
  Report Type: 
  Country: SE (occurrence: SE)
  Receive Date: 20120925
  Receipt Date: 20120925
  Transmission Date: 20130627
  Serious: Yes (Hospitalization)
  Sender: FDA-Public Use
  Company Number: SE-PFIZER INC-2012232173

PATIENT
  Sex: Male
  Weight: 116.6 kg

DRUGS (10)
  1. GENOTROPIN [Suspect]
     Indication: GROWTH HORMONE DEFICIENCY
     Dosage: 0.27 mg/day, 7 injections/week
     Route: 058
     Dates: start: 20001025, end: 20010521
  2. TESTOSTERONE ENANTATE [Concomitant]
     Indication: BLOOD LUTEINISING HORMONE DECREASED
     Dosage: UNK
     Dates: start: 19820606
  3. TESTOSTERONE ENANTATE [Concomitant]
     Indication: BLOOD FOLLICLE STIMULATING HORMONE DECREASED
  4. TESTOSTERONE ENANTATE [Concomitant]
     Indication: HYPOGONADISM MALE
  5. GLUCOPHAGE ^ARON^ [Concomitant]
     Indication: DIABETES MELLITUS
     Dosage: UNK
     Dates: start: 19940815
  6. NEBIDO [Concomitant]
     Indication: BLOOD LUTEINISING HORMONE DECREASED
     Dosage: UNK
     Dates: start: 20051221
  7. NEBIDO [Concomitant]
     Indication: BLOOD FOLLICLE STIMULATING HORMONE DECREASED
  8. NEBIDO [Concomitant]
     Indication: HYPOGONADISM MALE
  9. AVANDIA [Concomitant]
     Indication: ANTIBIOTIC THERAPY
     Dosage: UNK
     Dates: start: 20041118
  10. EFEXOR DEPOT [Concomitant]
     Indication: DEPRESSION
     Dosage: UNK
     Dates: start: 20041118

REACTIONS (1)
  - Furuncle [Unknown]
